FAERS Safety Report 8359212-7 (Version None)
Quarter: 2012Q2

REPORT INFORMATION
  Report Type: 
  Country: None (occurrence: None)
  Receive Date: 20120515
  Receipt Date: 20120504
  Transmission Date: 20120825
  Serious: Yes (Other)
  Sender: FDA-Public Use
  Company Number: US-CELGENEUS-163-21880-12041048

PATIENT
  Sex: Female

DRUGS (1)
  1. REVLIMID [Suspect]
     Dosage: 5 MILLIGRAM
     Route: 048
     Dates: start: 20110311

REACTIONS (4)
  - EAR NEOPLASM [None]
  - HYPOTHYROIDISM [None]
  - OEDEMA PERIPHERAL [None]
  - INCREASED TENDENCY TO BRUISE [None]
